FAERS Safety Report 4907387-1 (Version None)
Quarter: 2006Q1

REPORT INFORMATION
  Report Type: 
  Country: None (occurrence: None)
  Receive Date: 20060208
  Receipt Date: 20060208
  Transmission Date: 20060701
  Serious: Yes (Hospitalization, Other)
  Sender: FDA-Public Use
  Company Number: None

PATIENT
  Sex: Male
  Weight: 74.7 kg

DRUGS (1)
  1. TAXOL [Suspect]
     Indication: SQUAMOUS CELL CARCINOMA
     Dosage: 418 MG
     Dates: start: 20051208, end: 20060119

REACTIONS (3)
  - COUGH [None]
  - DYSPNOEA [None]
  - PLEURITIC PAIN [None]
